FAERS Safety Report 17843419 (Version 1)
Quarter: 2020Q2

REPORT INFORMATION
  Report Type: Spontaneous
  Country: CA (occurrence: CA)
  Receive Date: 20200530
  Receipt Date: 20200530
  Transmission Date: 20200714
  Serious: Yes (Death, Other)
  Sender: FDA-Public Use
  Company Number: CA-TEVA-2020-CA-1240897

PATIENT
  Age: 40 Year
  Sex: Male

DRUGS (5)
  1. APO-CLOBAZAM [Suspect]
     Active Substance: CLOBAZAM
     Indication: SEIZURE
     Route: 065
  2. CARBAMAZEPINE. [Suspect]
     Active Substance: CARBAMAZEPINE
     Indication: SEIZURE
     Route: 065
  3. CLOBAZAM. [Suspect]
     Active Substance: CLOBAZAM
     Indication: SEIZURE
     Route: 065
  4. TEGRETOL [Suspect]
     Active Substance: CARBAMAZEPINE
     Indication: SEIZURE
     Route: 065
  5. PHENYTOIN SODIUM. [Suspect]
     Active Substance: PHENYTOIN SODIUM
     Indication: SEIZURE
     Route: 065

REACTIONS (6)
  - Seizure [Fatal]
  - Withdrawal syndrome [Fatal]
  - Sudden unexplained death in epilepsy [Fatal]
  - Death [Fatal]
  - Disease recurrence [Fatal]
  - Drug ineffective [Fatal]
